FAERS Safety Report 4784626-1 (Version None)
Quarter: 2005Q3

REPORT INFORMATION
  Report Type: 
  Country: None (occurrence: None)
  Receive Date: 20050930
  Receipt Date: 20050623
  Transmission Date: 20060218
  Serious: Yes (Hospitalization)
  Sender: FDA-Public Use
  Company Number: US-MERCK-0506USA03563

PATIENT
  Age: 57 Year
  Sex: Female
  Weight: 43 kg

DRUGS (12)
  1. VIOXX [Suspect]
     Indication: SPONDYLITIS
     Route: 048
     Dates: start: 20020218, end: 20040915
  2. WELLBUTRIN [Concomitant]
     Route: 065
  3. ZOMAX [Concomitant]
     Route: 065
  4. ATROVENT [Concomitant]
     Route: 065
  5. SYNTHROID [Concomitant]
     Route: 065
  6. KLONOPIN [Concomitant]
     Route: 065
  7. INDERAL LA [Concomitant]
     Route: 065
  8. TRAZODONE HYDROCHLORIDE [Concomitant]
     Route: 065
  9. TRAZODONE HYDROCHLORIDE [Concomitant]
     Route: 048
  10. ZANTAC [Concomitant]
     Route: 065
  11. PREMARIN [Concomitant]
     Route: 065
  12. PROVERA [Concomitant]
     Route: 065

REACTIONS (20)
  - ABDOMINAL PAIN [None]
  - ACUTE MYOCARDIAL INFARCTION [None]
  - ANGINA UNSTABLE [None]
  - ATHEROSCLEROSIS [None]
  - BLOOD CHOLESTEROL INCREASED [None]
  - CARDIAC FAILURE CONGESTIVE [None]
  - CHRONIC OBSTRUCTIVE PULMONARY DISEASE [None]
  - CORONARY ARTERY DISEASE [None]
  - DISLOCATION OF VERTEBRA [None]
  - DYSPNOEA [None]
  - HYPERKALAEMIA [None]
  - HYPERLIPIDAEMIA [None]
  - HYPONATRAEMIA [None]
  - HYPOXIA [None]
  - INTERVERTEBRAL DISC DEGENERATION [None]
  - LABYRINTHITIS [None]
  - POLLAKIURIA [None]
  - SCIATICA [None]
  - TRANSIENT ISCHAEMIC ATTACK [None]
  - URINARY INCONTINENCE [None]
